FAERS Safety Report 4382284-1 (Version None)
Quarter: 2004Q2

REPORT INFORMATION
  Report Type: 
  Country: None (occurrence: None)
  Receive Date: 20040622
  Receipt Date: 20040609
  Transmission Date: 20050107
  Serious: Yes (Other)
  Sender: FDA-Public Use
  Company Number: PHEH2004US06339

PATIENT
  Age: 59 Year
  Sex: Female

DRUGS (4)
  1. LOTREL [Suspect]
     Indication: HYPERTENSION
     Dosage: 5 MG AMLOD/20 MG BENAZ QD
     Dates: start: 20040301
  2. NEXIUM                                  /USA/ [Concomitant]
  3. LASIX [Suspect]
     Dates: start: 20040301
  4. PRILOSEC [Concomitant]

REACTIONS (5)
  - DYSPNOEA [None]
  - OEDEMA PERIPHERAL [None]
  - PNEUMONIA [None]
  - SWELLING FACE [None]
  - WHEEZING [None]
